FAERS Safety Report 15271054 (Version 1)
Quarter: 2018Q4

REPORT INFORMATION
  Report Type: Spontaneous
  Country: US (occurrence: US)
  Receive Date: 20180813
  Receipt Date: 20180813
  Transmission Date: 20190204
  Serious: No
  Sender: FDA-Public Use
  Company Number: US-009507513-1808USA005100

PATIENT
  Sex: Female

DRUGS (1)
  1. BETAMETHASONE DIPROPIONATE (+) SALICYLIC ACID [Suspect]
     Active Substance: BETAMETHASONE DIPROPIONATE\SALICYLIC ACID
     Indication: SKIN LESION REMOVAL
     Dosage: UNK

REACTIONS (1)
  - Expired product administered [Unknown]
